FAERS Safety Report 22652918 (Version 1)
Quarter: 2023Q2

REPORT INFORMATION
  Report Type: Spontaneous
  Country: AT (occurrence: AT)
  Receive Date: 20230629
  Receipt Date: 20230629
  Transmission Date: 20230722
  Serious: Yes (Other)
  Sender: FDA-Public Use
  Company Number: None

PATIENT
  Age: 26 Year
  Sex: Male

DRUGS (10)
  1. PREGABALIN [Suspect]
     Active Substance: PREGABALIN
     Dosage: 3X0.5MG
  2. BISOPROLOL [Suspect]
     Active Substance: BISOPROLOL
  3. TIZANIDINE [Suspect]
     Active Substance: TIZANIDINE
     Dosage: 2X200MG
  4. LEVETIRACETAM [Suspect]
     Active Substance: LEVETIRACETAM
     Dates: start: 20230515
  5. CLONAZEPAM [Suspect]
     Active Substance: CLONAZEPAM
  6. LAMICTAL [Suspect]
     Active Substance: LAMOTRIGINE
     Dates: start: 20230515
  7. LEVOMETHADONE [Suspect]
     Active Substance: LEVOMETHADONE
     Dates: start: 20230608
  8. MIANSERIN [Suspect]
     Active Substance: MIANSERIN
     Dates: start: 20230410
  9. PAROXETINE HYDROCHLORIDE [Suspect]
     Active Substance: PAROXETINE HYDROCHLORIDE
     Dates: start: 20140811
  10. LISDEXAMFETAMINE DIMESYLATE [Suspect]
     Active Substance: LISDEXAMFETAMINE DIMESYLATE
     Dosage: ELVANSE ADULT 70MG
     Dates: start: 20230410

REACTIONS (8)
  - Condition aggravated [Not Recovered/Not Resolved]
  - Extrapyramidal disorder [Not Recovered/Not Resolved]
  - Inborn error of amino acid metabolism [Not Recovered/Not Resolved]
  - Sexual dysfunction [Not Recovered/Not Resolved]
  - Restless legs syndrome [Not Recovered/Not Resolved]
  - Myalgia [Not Recovered/Not Resolved]
  - Akathisia [Not Recovered/Not Resolved]
  - Fatigue [Not Recovered/Not Resolved]

NARRATIVE: CASE EVENT DATE: 20230613
